FAERS Safety Report 9803316 (Version 1)
Quarter: 2014Q1

REPORT INFORMATION
  Report Type: Spontaneous
  Country: US (occurrence: None)
  Receive Date: 20140107
  Receipt Date: 20140107
  Transmission Date: 20141002
  Serious: Yes (Other)
  Sender: FDA-Public Use
  Company Number: None

PATIENT
  Age: 31 Year
  Sex: Male
  Weight: 137.48 kg

DRUGS (6)
  1. LEVOTHYROXINE SODIUM [Suspect]
     Indication: THYROID CANCER
     Dosage: 300 MCG ?ONE?DAILY?P.O. (MOUTH)
     Route: 048
     Dates: end: 20131220
  2. SYNTHROID [Concomitant]
  3. LISINOPRIL [Concomitant]
  4. PAROXETINE [Concomitant]
  5. SIMVASTATIN [Concomitant]
  6. LEVOTHYROXINE SODIUM [Suspect]
     Indication: HYPOTHYROIDISM
     Dosage: 300 MCG ?ONE?DAILY?P.O. (MOUTH)
     Route: 048
     Dates: end: 20131220

REACTIONS (7)
  - Temperature intolerance [None]
  - Dry skin [None]
  - Onychoclasis [None]
  - Alopecia [None]
  - Disturbance in attention [None]
  - Poor quality sleep [None]
  - Fatigue [None]
